FAERS Safety Report 20340136 (Version 1)
Quarter: 2022Q1

REPORT INFORMATION
  Report Type: Spontaneous
  Country: US (occurrence: US)
  Receive Date: 20220117
  Receipt Date: 20220117
  Transmission Date: 20220423
  Serious: Yes (Death, Hospitalization, Other)
  Sender: FDA-Public Use
  Company Number: US-APOTEX-2022AP001952

PATIENT
  Age: 19 Year
  Sex: Female

DRUGS (1)
  1. FLECAINIDE [Suspect]
     Active Substance: FLECAINIDE
     Indication: Atrial tachycardia
     Dosage: UP TO 3 GRAMS
     Route: 048

REACTIONS (14)
  - Intentional overdose [Fatal]
  - Completed suicide [Fatal]
  - Cardio-respiratory arrest [Fatal]
  - Brain injury [Fatal]
  - Unresponsive to stimuli [Unknown]
  - Rhythm idioventricular [Unknown]
  - Pericardial effusion [Unknown]
  - Hypernatraemia [Unknown]
  - Haemodynamic instability [Unknown]
  - Nodal rhythm [Unknown]
  - Heart rate irregular [Unknown]
  - Urine output increased [Unknown]
  - Electrocardiogram QRS complex prolonged [Unknown]
  - Cardiac arrest [Unknown]

NARRATIVE: CASE EVENT DATE: 20200101
